FAERS Safety Report 15798824 (Version 2)
Quarter: 2019Q1

REPORT INFORMATION
  Report Type: Spontaneous
  Country: GB (occurrence: GB)
  Receive Date: 20190108
  Receipt Date: 20190108
  Transmission Date: 20190417
  Serious: Yes (Other)
  Sender: FDA-Public Use
  Company Number: GB-SAMSUNG BIOEPIS-SB-2019-00072

PATIENT

DRUGS (2)
  1. METHOTREXATE. [Suspect]
     Active Substance: METHOTREXATE
     Indication: PRODUCT USED FOR UNKNOWN INDICATION
     Dosage: UNKNOWN
     Route: 065
  2. INFLIXIMAB [Suspect]
     Active Substance: INFLIXIMAB
     Indication: PRODUCT USED FOR UNKNOWN INDICATION
     Route: 065

REACTIONS (9)
  - Eye inflammation [Unknown]
  - Granuloma [Unknown]
  - Ocular sarcoidosis [Unknown]
  - Inflammatory marker increased [Unknown]
  - Nodular rash [Unknown]
  - Pyrexia [Unknown]
  - Skin mass [Unknown]
  - Arthritis [Unknown]
  - Sarcoidosis [Unknown]
